FAERS Safety Report 12110456 (Version 2)
Quarter: 2016Q1

REPORT INFORMATION
  Report Type: Report from Study
  Country: US (occurrence: US)
  Receive Date: 20160224
  Receipt Date: 20160304
  Transmission Date: 20160526
  Serious: Yes (Other)
  Sender: FDA-Public Use
  Company Number: US-UCBSA-2016006327

PATIENT
  Age: 0 Year
  Sex: Male
  Weight: 1.87 kg

DRUGS (4)
  1. FOLIC ACID. [Concomitant]
     Active Substance: FOLIC ACID
     Indication: PREGNANCY
     Dosage: 1 MG DAILY
     Route: 064
     Dates: start: 2015, end: 20150225
  2. COD LIVER OIL [Concomitant]
     Active Substance: COD LIVER OIL
     Indication: SUPPLEMENTATION THERAPY
     Dosage: DAILY
     Route: 064
     Dates: end: 20150225
  3. LEVETIRACETAM. [Suspect]
     Active Substance: LEVETIRACETAM
     Indication: SEIZURE
     Dosage: 2000 MG DAILY
     Route: 064
     Dates: start: 2014, end: 20150225
  4. PRENATAL VITAMINS [Concomitant]
     Active Substance: VITAMINS
     Indication: PREGNANCY
     Dosage: 1 TAB DAILY
     Route: 064
     Dates: start: 2015, end: 20150225

REACTIONS (3)
  - Premature baby [Unknown]
  - Developmental delay [Unknown]
  - Foetal exposure during pregnancy [Unknown]

NARRATIVE: CASE EVENT DATE: 2014
